FAERS Safety Report 9777536 (Version 2)
Quarter: 2014Q1

REPORT INFORMATION
  Report Type: Spontaneous
  Country: JP (occurrence: JP)
  Receive Date: 20131222
  Receipt Date: 20140211
  Transmission Date: 20141002
  Serious: Yes (Death, Life-Threatening, Other)
  Sender: FDA-Public Use
  Company Number: PHHY2013JP150025

PATIENT
  Age: 78 Year
  Sex: Male
  Weight: 61 kg

DRUGS (12)
  1. EXELON PATCH [Suspect]
     Indication: CREUTZFELDT-JAKOB DISEASE
     Dosage: 1.9 MG/24 HOURS (4.5 MG DAILY)
     Route: 062
     Dates: start: 20120709, end: 20120801
  2. EXELON PATCH [Suspect]
     Indication: OFF LABEL USE
  3. EXELON PATCH [Suspect]
     Indication: DEMENTIA WITH LEWY BODIES
  4. EXFORGE [Concomitant]
     Indication: HYPERTENSION
     Dosage: 1 DF, UNK
     Route: 048
     Dates: start: 20120703, end: 20130418
  5. SEROQUEL [Concomitant]
     Indication: INSOMNIA
     Dosage: 50 MG, UNK
     Route: 048
     Dates: start: 20120703, end: 20120727
  6. ROZEREM [Concomitant]
     Indication: INSOMNIA
     Dosage: 8 MG, UNK
     Route: 048
     Dates: start: 20120704, end: 20120723
  7. NYCLIN [Concomitant]
     Indication: NUTRITIONAL SUPPLEMENTATION
     Dosage: 100 MG, UNK
     Route: 048
     Dates: start: 20120706, end: 20130418
  8. DICETAMIN [Concomitant]
     Indication: NUTRITIONAL SUPPLEMENTATION
     Dosage: 100 MG, UNK
     Route: 048
     Dates: start: 20120706, end: 20130418
  9. VITADAN [Concomitant]
     Indication: NUTRITIONAL SUPPLEMENTATION
     Dosage: 3 DF, UNK
     Route: 048
     Dates: start: 20120706, end: 20130418
  10. MECOBALAMIN [Concomitant]
     Indication: PERIPHERAL SENSORY NEUROPATHY
     Dosage: 1.5 MG, UNK
     Route: 048
     Dates: start: 20120706, end: 20130418
  11. YOUTETINE [Concomitant]
     Indication: CONSTIPATION
     Dosage: 300 MG, UNK
     Route: 048
     Dates: start: 20120706, end: 20130418
  12. MAINTATE [Concomitant]
     Indication: ARRHYTHMIA
     Dosage: 5 MG, UNK
     Route: 048
     Dates: start: 20120703, end: 20130418

REACTIONS (9)
  - Respiratory failure [Fatal]
  - Pneumonia [Fatal]
  - Creutzfeldt-Jakob disease [Unknown]
  - Dementia [Unknown]
  - Myoclonus [Unknown]
  - Aphagia [Unknown]
  - Pneumonia aspiration [Unknown]
  - Locked-in syndrome [Unknown]
  - Pyrexia [Unknown]
